FAERS Safety Report 4616185-8 (Version None)
Quarter: 2005Q1

REPORT INFORMATION
  Report Type: 
  Country: None (occurrence: None)
  Receive Date: 20050317
  Receipt Date: 20040218
  Transmission Date: 20050727
  Serious: Yes (Other)
  Sender: FDA-Public Use
  Company Number: 2004-DE-00832ZA

PATIENT
  Age: 35 Year
  Sex: Female

DRUGS (4)
  1. NEVIRAPINE (NEVIRAPINE) (TA) (NEVIRAPINE) [Suspect]
     Indication: HIV INFECTION
     Dosage: 200 MG (200 MG) PO
     Route: 048
     Dates: start: 19991011, end: 19991025
  2. NEVIRAPINE (NEVIRAPINE) (TA) [Suspect]
     Indication: HIV INFECTION
     Dosage: 400 MG (200 MG) PO
     Route: 048
     Dates: start: 19991025, end: 20000918
  3. EMTRICITABINE (EMTRICITABINE) (NR) [Suspect]
     Indication: HIV INFECTION
     Dosage: 200 MG (200 MG) PO
     Route: 048
     Dates: start: 19991011, end: 20000918
  4. EPIVIR [Suspect]
     Indication: HIV INFECTION
     Dosage: 300 MG (300 MG) PO
     Route: 048
     Dates: start: 19991011, end: 20000918

REACTIONS (2)
  - ABORTION INDUCED [None]
  - DRUG EXPOSURE DURING PREGNANCY [None]
